FAERS Safety Report 9779982 (Version 2)
Quarter: 2013Q4

REPORT INFORMATION
  Report Type: Spontaneous
  Country: JP (occurrence: JP)
  Receive Date: 20131223
  Receipt Date: 20131223
  Transmission Date: 20140711
  Serious: Yes (Other)
  Sender: FDA-Public Use
  Company Number: JP-PFIZER INC-2013363150

PATIENT
  Age: 10 Year
  Sex: Female

DRUGS (7)
  1. CYTARABINE [Suspect]
     Indication: T-CELL TYPE ACUTE LEUKAEMIA
     Dosage: 30 MG, CYCLIC (SINGLE ADMINISTERED ON DAY FIVE)
     Route: 037
  2. METHOTREXATE SODIUM [Suspect]
     Dosage: 12 MG, CYCLIC (ADMINISTERED ON DAY FIVE)
  3. DAUNORUBICIN HCL [Suspect]
     Dosage: 30 MG/M2, WEEKLY
  4. L-ASPARAGINASE [Suspect]
     Indication: T-CELL TYPE ACUTE LEUKAEMIA
     Dosage: 5000 UNITS/M2) ADMINISTERED EVERY THIRD DAY
     Route: 030
  5. VINCRISTINE [Suspect]
     Indication: T-CELL TYPE ACUTE LEUKAEMIA
     Dosage: 1.5 MG/M2, WEEKLY
     Route: 042
  6. DEXAMETHASONE [Suspect]
     Indication: T-CELL TYPE ACUTE LEUKAEMIA
     Dosage: 10 MG/M2, CYCLIC (DAILY FOR THREE WEEKS)
     Route: 048
  7. PREDNISOLONE [Suspect]
     Indication: T-CELL TYPE ACUTE LEUKAEMIA
     Dosage: 10 MG, CYCLIC (ADMINISTERED ON DAY FIVE)

REACTIONS (1)
  - Posterior reversible encephalopathy syndrome [Recovered/Resolved]
